FAERS Safety Report 16243203 (Version 4)
Quarter: 2019Q4

REPORT INFORMATION
  Report Type: Spontaneous
  Country: US (occurrence: US)
  Receive Date: 20190426
  Receipt Date: 20191216
  Transmission Date: 20200122
  Serious: Yes (Hospitalization, Other)
  Sender: FDA-Public Use
  Company Number: US-GLAXOSMITHKLINE-US2019GSK075276

PATIENT
  Sex: Male

DRUGS (4)
  1. PREVACID [Suspect]
     Active Substance: LANSOPRAZOLE
     Indication: GASTROOESOPHAGEAL REFLUX DISEASE
     Dosage: 30 MG, QD
     Route: 065
  2. OMEPRAZOLE. [Suspect]
     Active Substance: OMEPRAZOLE
     Indication: HYPERCHLORHYDRIA
     Dosage: 20 MG, QD
     Route: 048
  3. OMEPRAZOLE. [Suspect]
     Active Substance: OMEPRAZOLE
     Indication: GASTROOESOPHAGEAL REFLUX DISEASE
     Dosage: 40 MG, QD
     Route: 048
  4. PREVACID [Suspect]
     Active Substance: LANSOPRAZOLE
     Indication: PRODUCT USED FOR UNKNOWN INDICATION
     Dosage: UNK
     Route: 048

REACTIONS (20)
  - Diabetic nephropathy [Unknown]
  - Chest pain [Unknown]
  - Acute kidney injury [Unknown]
  - Nephrosclerosis [Unknown]
  - Coronary angioplasty [Unknown]
  - Dysuria [Unknown]
  - Kidney infection [Unknown]
  - Renal failure [Unknown]
  - Myocardial infarction [Unknown]
  - Renal injury [Unknown]
  - Renal cyst [Unknown]
  - Chronic kidney disease [Unknown]
  - Hypertensive nephropathy [Unknown]
  - Renal atrophy [Unknown]
  - Renal impairment [Unknown]
  - Proteinuria [Unknown]
  - Nephrolithiasis [Unknown]
  - Renal disorder [Unknown]
  - Cystitis [Unknown]
  - Cardiac failure congestive [Unknown]
